FAERS Safety Report 6070482-0 (Version None)
Quarter: 2009Q1

REPORT INFORMATION
  Report Type: 
  Country: None (occurrence: None)
  Receive Date: 20090209
  Receipt Date: 20090202
  Transmission Date: 20090719
  Serious: Yes (Hospitalization, Disabling, Other)
  Sender: FDA-Public Use
  Company Number: US-MERCK-0808USA03978

PATIENT
  Age: 84 Year
  Sex: Female

DRUGS (4)
  1. FOSAMAX [Suspect]
     Indication: OSTEOPOROSIS
     Route: 048
     Dates: start: 20010401, end: 20011201
  2. FOSAMAX PLUS D [Suspect]
     Route: 048
     Dates: start: 20020101, end: 20061201
  3. ACTONEL [Suspect]
     Route: 065
     Dates: start: 20070101, end: 20071001
  4. METOPROLOL [Concomitant]
     Route: 065
     Dates: start: 20001128

REACTIONS (14)
  - ANGINA PECTORIS [None]
  - CELLULITIS [None]
  - CORONARY ARTERY DISEASE [None]
  - DEMENTIA [None]
  - EYELID PTOSIS [None]
  - FACIAL NERVE DISORDER [None]
  - LOOSE TOOTH [None]
  - MENTAL IMPAIRMENT [None]
  - MITRAL VALVE INCOMPETENCE [None]
  - MOBILITY DECREASED [None]
  - OSTEOMYELITIS [None]
  - OSTEONECROSIS [None]
  - TOOTH ABSCESS [None]
  - VENTRICULAR TACHYCARDIA [None]
